FAERS Safety Report 8659025 (Version 3)
Quarter: 2012Q4

REPORT INFORMATION
  Report Type: Report from Study
  Country: US (occurrence: US)
  Receive Date: 20120710
  Receipt Date: 20121016
  Transmission Date: 20130627
  Serious: Yes (Hospitalization)
  Sender: FDA-Public Use
  Company Number: US-GILEAD-2012-0054607

PATIENT
  Age: 50 Year
  Sex: Female

DRUGS (2)
  1. EMTRICITABINE/TENOFOVIR DISOPROXIL FUMARATE [Suspect]
     Indication: HIV INFECTION
     Dosage: 1 DF, QD
     Route: 048
     Dates: start: 20090915
  2. RALTEGRAVIR [Suspect]
     Indication: HIV INFECTION
     Dosage: 400 mg, BID
     Route: 048
     Dates: start: 20090915

REACTIONS (2)
  - Hip fracture [Recovered/Resolved]
  - Back pain [Not Recovered/Not Resolved]
